FAERS Safety Report 20810691 (Version 2)
Quarter: 2022Q2

REPORT INFORMATION
  Report Type: Report from Study
  Country: FR (occurrence: FR)
  Receive Date: 20220510
  Receipt Date: 20220518
  Transmission Date: 20220720
  Serious: Yes (Hospitalization)
  Sender: FDA-Public Use
  Company Number: FR-BRISTOL-MYERS SQUIBB COMPANY-2022-035102

PATIENT
  Sex: Male
  Weight: 61 kg

DRUGS (2)
  1. REGORAFENIB [Suspect]
     Active Substance: REGORAFENIB
     Indication: Squamous cell carcinoma of head and neck
     Dosage: 30 MG TABLET: FROM 10-JAN-2022 TO 16-JAN-2022 RECEVIED 90 MG
     Route: 048
     Dates: start: 20211213
  2. REGORAFENIB [Suspect]
     Active Substance: REGORAFENIB
     Dosage: FROM 17-JAN-2022 TO 30-JAN-2022 RECEIVED 120 MG?FROM 07-FEB-2022 TO 27-FEB-2022 RECEIVED 120 MG AND
     Route: 048
     Dates: start: 20220117

REACTIONS (1)
  - Weight decreased [Not Recovered/Not Resolved]

NARRATIVE: CASE EVENT DATE: 20220502
